FAERS Safety Report 5452863-9 (Version None)
Quarter: 2007Q3

REPORT INFORMATION
  Report Type: 
  Country: None (occurrence: None)
  Receive Date: 20070914
  Receipt Date: 20070904
  Transmission Date: 20080115
  Serious: Yes (Other)
  Sender: FDA-Public Use
  Company Number: HU-ROCHE-515333

PATIENT
  Age: 73 Year
  Sex: Female

DRUGS (4)
  1. BONIVA [Suspect]
     Indication: OSTEOPOROSIS
     Route: 042
     Dates: start: 20070801
  2. BONIVA [Suspect]
     Route: 065
  3. ARAVA [Concomitant]
  4. MEDROL [Concomitant]

REACTIONS (1)
  - BURNING SENSATION [None]
